FAERS Safety Report 20967610 (Version 2)
Quarter: 2022Q3

REPORT INFORMATION
  Report Type: Spontaneous
  Country: DE (occurrence: DE)
  Receive Date: 20220616
  Receipt Date: 20220726
  Transmission Date: 20221027
  Serious: Yes (Other)
  Sender: FDA-Public Use
  Company Number: DE-PFIZER INC-202200827963

PATIENT
  Age: 72 Year
  Sex: Female

DRUGS (3)
  1. MITOXANTRONE HYDROCHLORIDE [Suspect]
     Active Substance: MITOXANTRONE HYDROCHLORIDE
     Indication: Breast cancer
     Dosage: 10 MG/M2/DAY, EVERY 3 WEEKS
  2. MITOXANTRONE HYDROCHLORIDE [Suspect]
     Active Substance: MITOXANTRONE HYDROCHLORIDE
     Dosage: 170 MG (100 MG/M2)
  3. CYCLOPHOSPHAMIDE [Concomitant]
     Active Substance: CYCLOPHOSPHAMIDE
     Indication: Breast cancer
     Dosage: 500 MG/M2, DAILY

REACTIONS (4)
  - Cardiac failure [Unknown]
  - Accidental overdose [Unknown]
  - Myelosuppression [Unknown]
  - Decreased appetite [Unknown]
